FAERS Safety Report 5332295-4 (Version None)
Quarter: 2007Q2

REPORT INFORMATION
  Report Type: 
  Country: None (occurrence: None)
  Receive Date: 20070523
  Receipt Date: 20070514
  Transmission Date: 20071010
  Serious: Yes (Hospitalization)
  Sender: FDA-Public Use
  Company Number: US-MERCK-0705USA02961

PATIENT
  Age: 64 Year
  Sex: Female
  Weight: 65 kg

DRUGS (4)
  1. PRINIVIL [Suspect]
     Route: 048
  2. LOPID [Concomitant]
     Route: 048
  3. VIOXX [Concomitant]
     Route: 048
  4. TALACEN [Concomitant]
     Route: 065

REACTIONS (10)
  - ANGIOEDEMA [None]
  - APPENDICECTOMY [None]
  - ARTHRITIS [None]
  - BACK PAIN [None]
  - CHOLECYSTECTOMY [None]
  - HYPERTENSION [None]
  - HYSTERECTOMY [None]
  - INTERVERTEBRAL DISC PROTRUSION [None]
  - NECK PAIN [None]
  - NEPHROLITHIASIS [None]
